FAERS Safety Report 19721729 (Version 1)
Quarter: 2021Q3

REPORT INFORMATION
  Report Type: Spontaneous
  Country: ES (occurrence: ES)
  Receive Date: 20210819
  Receipt Date: 20210819
  Transmission Date: 20211014
  Serious: Yes (Hospitalization)
  Sender: FDA-Public Use
  Company Number: ES-FERRINGPH-2021FE05111

PATIENT
  Age: 64 Year
  Sex: Male

DRUGS (5)
  1. EUTIROX [Concomitant]
     Active Substance: LEVOTHYROXINE SODIUM
     Indication: HYPOTHYROIDISM
     Dosage: UNK
     Route: 060
  2. HIDROALTESONA [Concomitant]
     Active Substance: HYDROCORTISONE
     Dosage: UNK
     Route: 060
  3. ADIRO [Concomitant]
     Active Substance: ASPIRIN
     Indication: THROMBOSIS PROPHYLAXIS
     Dosage: UNK
     Route: 060
  4. REANDRON [Concomitant]
     Active Substance: TESTOSTERONE
     Indication: HORMONE REPLACEMENT THERAPY
     Dosage: 1 DF EVERY 5 MONTHS
     Route: 058
  5. MINURIN [Suspect]
     Active Substance: DESMOPRESSIN ACETATE
     Indication: HYPOPITUITARISM
     Dosage: UNK
     Route: 045
     Dates: start: 2020

REACTIONS (3)
  - Blood sodium decreased [Recovered/Resolved]
  - Product administration error [Recovered/Resolved]
  - Blood potassium decreased [Recovered/Resolved]

NARRATIVE: CASE EVENT DATE: 2020
